FAERS Safety Report 9807092 (Version 1)
Quarter: 2014Q1

REPORT INFORMATION
  Report Type: Spontaneous
  Country: US (occurrence: US)
  Receive Date: 20140110
  Receipt Date: 20140110
  Transmission Date: 20141002
  Serious: No
  Sender: FDA-Public Use
  Company Number: US-009507513-1401USA002995

PATIENT
  Age: 13 Year
  Sex: Female

DRUGS (9)
  1. NEXIUM [Suspect]
     Route: 048
  2. XELJANZ [Suspect]
     Indication: RHEUMATOID ARTHRITIS
     Dosage: UNK, BID
     Route: 048
     Dates: start: 20130812
  3. METHOCARBAMOL [Concomitant]
  4. NORCO [Concomitant]
  5. GABAPENTIN [Concomitant]
  6. ABILIFY [Concomitant]
  7. MACROBID (NITROFURANTOIN) [Concomitant]
  8. PENNSAID [Concomitant]
  9. CYMBALTA [Concomitant]

REACTIONS (1)
  - Lip oedema [Not Recovered/Not Resolved]
